FAERS Safety Report 21052070 (Version 3)
Quarter: 2022Q3

REPORT INFORMATION
  Report Type: Report from Study
  Country: BR (occurrence: BR)
  Receive Date: 20220707
  Receipt Date: 20220924
  Transmission Date: 20221026
  Serious: Yes (Hospitalization, Other)
  Sender: FDA-Public Use
  Company Number: BR-NOVARTISPH-NVSC2022BR143544

PATIENT
  Age: 41 Year
  Sex: Female

DRUGS (3)
  1. COSENTYX [Suspect]
     Active Substance: SECUKINUMAB
     Indication: Psoriatic arthropathy
     Dosage: 300 MG, QW (NOT STARTED)(150MG (AMPOULES), APPLY TWO AMPOULES AT WEEK 0,1,2,3 AND 4, THEN APPLY TWO
     Route: 065
  2. COSENTYX [Suspect]
     Active Substance: SECUKINUMAB
     Dosage: UNK (MORE THAN 3 OR 4 YEARS AGO)
     Route: 065
  3. COSENTYX [Suspect]
     Active Substance: SECUKINUMAB
     Dosage: UNK (LAST DOSE)
     Route: 065
     Dates: start: 20220917

REACTIONS (3)
  - Thrombosis [Unknown]
  - Urinary tract infection [Recovering/Resolving]
  - Product prescribing error [Unknown]

NARRATIVE: CASE EVENT DATE: 20220915
